FAERS Safety Report 6237322-8 (Version None)
Quarter: 2009Q2

REPORT INFORMATION
  Report Type: 
  Country: None (occurrence: None)
  Receive Date: 20090619
  Receipt Date: 20090616
  Transmission Date: 20091009
  Serious: Yes (Death)
  Sender: FDA-Public Use
  Company Number: ZA-MYLANLABS-2009S1010644

PATIENT
  Sex: Male
  Weight: 1.05 kg

DRUGS (3)
  1. ZIDOVUDINE [Suspect]
     Route: 064
  2. LAMIVUDINE [Suspect]
     Route: 064
  3. EFAVIRENZ [Suspect]
     Route: 064

REACTIONS (1)
  - STILLBIRTH [None]
